FAERS Safety Report 5620135-5 (Version None)
Quarter: 2008Q1

REPORT INFORMATION
  Report Type: 
  Country: None (occurrence: None)
  Receive Date: 20080208
  Receipt Date: 20080128
  Transmission Date: 20080703
  Serious: Yes (Hospitalization, Disabling)
  Sender: FDA-Public Use
  Company Number: US-ELI_LILLY_AND_COMPANY-US200801006023

PATIENT
  Sex: Female

DRUGS (17)
  1. FORTEO [Suspect]
     Dosage: UNK, UNK
     Dates: start: 20060101, end: 20080124
  2. FORTEO [Suspect]
     Dates: start: 20080101
  3. CYMBALTA [Concomitant]
     Dates: start: 20050101
  4. LEVOXYL [Concomitant]
  5. NEXIUM [Concomitant]
  6. MAGNESIUM [Concomitant]
  7. NEURONTIN [Concomitant]
  8. POTASSIUM CHLORIDE [Concomitant]
  9. ZETIA [Concomitant]
  10. TRAZODONE HCL [Concomitant]
  11. CRESTOR [Concomitant]
  12. MORPHINE [Concomitant]
  13. FLEXERIL [Concomitant]
  14. GLUCOPHAGE [Concomitant]
  15. ISOSORBIDE DINITRATE [Concomitant]
  16. SPIRONOLACTONE [Concomitant]
  17. LISINOPRIL [Concomitant]

REACTIONS (2)
  - ACTIVITIES OF DAILY LIVING IMPAIRED [None]
  - INTERVERTEBRAL DISC PROTRUSION [None]
